FAERS Safety Report 12516568 (Version 1)
Quarter: 2016Q2

REPORT INFORMATION
  Report Type: Spontaneous
  Country: HR (occurrence: HR)
  Receive Date: 20160630
  Receipt Date: 20160630
  Transmission Date: 20160815
  Serious: Yes (Hospitalization)
  Sender: FDA-Public Use
  Company Number: HR-TEVA-670379ACC

PATIENT
  Age: 36 Year
  Sex: Female
  Weight: 58 kg

DRUGS (1)
  1. IBUXIN RAPID [Suspect]
     Active Substance: IBUPROFEN LYSINE
     Indication: BACK PAIN
     Dosage: 400 MG; 1-2 DAILY
     Route: 048

REACTIONS (5)
  - Malaise [Recovered/Resolved with Sequelae]
  - Head injury [None]
  - Pain [None]
  - Syncope [Recovered/Resolved with Sequelae]
  - Fall [None]

NARRATIVE: CASE EVENT DATE: 20160221
